FAERS Safety Report 18997741 (Version 2)
Quarter: 2021Q3

REPORT INFORMATION
  Report Type: Spontaneous
  Country: US (occurrence: US)
  Receive Date: 20210311
  Receipt Date: 20210721
  Transmission Date: 20211014
  Serious: Yes (Hospitalization, Other)
  Sender: FDA-Public Use
  Company Number: US-ASTRAZENECA-2021A107563

PATIENT
  Age: 25911 Day
  Sex: Male
  Weight: 96.6 kg

DRUGS (75)
  1. LEVOFLOXACIN. [Concomitant]
     Active Substance: LEVOFLOXACIN
     Dates: start: 20160216, end: 20160317
  2. TUMS [Concomitant]
     Active Substance: CALCIUM CARBONATE
     Dates: start: 20130215, end: 20130317
  3. TAMSULOSIN [Concomitant]
     Active Substance: TAMSULOSIN
     Dates: start: 20150206, end: 20150308
  4. FEBUXOSTAT. [Concomitant]
     Active Substance: FEBUXOSTAT
     Dates: start: 20130215, end: 20130317
  5. CARVEDILOL. [Concomitant]
     Active Substance: CARVEDILOL
     Dates: start: 20130215, end: 20130317
  6. GENTAMICIN. [Concomitant]
     Active Substance: GENTAMICIN
     Dates: start: 20150813, end: 20150912
  7. MITOMYCIN. [Concomitant]
     Active Substance: MITOMYCIN
     Dates: start: 20150813, end: 20150912
  8. NITROFURANTOIN. [Concomitant]
     Active Substance: NITROFURANTOIN
     Dates: start: 20130215, end: 20130317
  9. PRILOSEC [Suspect]
     Active Substance: OMEPRAZOLE MAGNESIUM
     Indication: GASTROOESOPHAGEAL REFLUX DISEASE
     Route: 048
     Dates: start: 2017
  10. ALLOPURINOL. [Concomitant]
     Active Substance: ALLOPURINOL
     Dates: start: 20160125, end: 20160224
  11. TUMS [Concomitant]
     Active Substance: CALCIUM CARBONATE
     Dates: start: 20150813, end: 20150912
  12. CARVEDILOL. [Concomitant]
     Active Substance: CARVEDILOL
     Dates: start: 20150206, end: 20150308
  13. ISOSORBIDE DINITRATE. [Concomitant]
     Active Substance: ISOSORBIDE DINITRATE
     Dates: start: 20130215, end: 20130317
  14. NITROFURANTOIN. [Concomitant]
     Active Substance: NITROFURANTOIN
     Dates: start: 20150813, end: 20150912
  15. COLCHICINE. [Concomitant]
     Active Substance: COLCHICINE
     Dates: start: 20150206, end: 20150308
  16. COLCHICINE. [Concomitant]
     Active Substance: COLCHICINE
     Dates: start: 20150813, end: 20150912
  17. PRILOSEC [Suspect]
     Active Substance: OMEPRAZOLE MAGNESIUM
     Indication: GASTROOESOPHAGEAL REFLUX DISEASE
     Dosage: GENERIC
     Route: 065
     Dates: end: 2017
  18. PRILOSEC [Suspect]
     Active Substance: OMEPRAZOLE MAGNESIUM
     Indication: GASTROOESOPHAGEAL REFLUX DISEASE
     Dosage: GENERIC, MR
     Route: 048
     Dates: start: 20161021, end: 20171022
  19. FUROSEMIDE. [Concomitant]
     Active Substance: FUROSEMIDE
     Dates: start: 20161019, end: 201710
  20. CIPROFLOXACIN. [Concomitant]
     Active Substance: CIPROFLOXACIN
     Dates: start: 20130215, end: 20130317
  21. TUMS [Concomitant]
     Active Substance: CALCIUM CARBONATE
     Dates: start: 2009
  22. TAMSULOSIN [Concomitant]
     Active Substance: TAMSULOSIN
     Dates: start: 20150813, end: 20150912
  23. FERROUS GLUCONATE [Concomitant]
     Active Substance: FERROUS GLUCONATE
     Dates: start: 20130215, end: 20130317
  24. HYDROCODONE [Concomitant]
     Active Substance: HYDROCODONE
     Dates: start: 20150206, end: 20150308
  25. MITOMYCIN. [Concomitant]
     Active Substance: MITOMYCIN
     Dates: start: 20130215, end: 20130317
  26. COLCHICINE. [Concomitant]
     Active Substance: COLCHICINE
     Dates: start: 20130215, end: 20130317
  27. WARFARIN [Concomitant]
     Active Substance: WARFARIN
     Dates: start: 20150206, end: 20150308
  28. PRILOSEC [Suspect]
     Active Substance: OMEPRAZOLE MAGNESIUM
     Indication: GASTROOESOPHAGEAL REFLUX DISEASE
     Dosage: GENERIC
     Route: 065
     Dates: start: 2009
  29. CIPROFLOXACIN. [Concomitant]
     Active Substance: CIPROFLOXACIN
     Dates: start: 20150206, end: 20150308
  30. FEBUXOSTAT. [Concomitant]
     Active Substance: FEBUXOSTAT
     Dates: start: 20150206, end: 20150308
  31. FEBUXOSTAT. [Concomitant]
     Active Substance: FEBUXOSTAT
     Dates: start: 20150813, end: 20150912
  32. HYDROCODONE [Concomitant]
     Active Substance: HYDROCODONE
     Dates: start: 20130215, end: 20130317
  33. DICLOXACILLIN [Concomitant]
     Active Substance: DICLOXACILLIN
     Dates: start: 20150206, end: 20150308
  34. GENTAMICIN. [Concomitant]
     Active Substance: GENTAMICIN
     Dates: start: 20130215, end: 20130317
  35. DOXYCYCLINE. [Concomitant]
     Active Substance: DOXYCYCLINE
     Dates: start: 20160502, end: 20160601
  36. LISINOPRIL. [Concomitant]
     Active Substance: LISINOPRIL
     Dates: start: 20121012, end: 20131013
  37. FERROUS GLUCONATE [Concomitant]
     Active Substance: FERROUS GLUCONATE
     Dates: start: 20150206, end: 20150308
  38. GENTAMICIN. [Concomitant]
     Active Substance: GENTAMICIN
     Dates: start: 20150206, end: 20150308
  39. NITROFURANTOIN. [Concomitant]
     Active Substance: NITROFURANTOIN
     Dates: start: 20150206, end: 20150308
  40. ATORVASTATIN [Concomitant]
     Active Substance: ATORVASTATIN
     Dates: start: 20150813, end: 20150912
  41. PRILOSEC OTC [Suspect]
     Active Substance: OMEPRAZOLE MAGNESIUM
     Indication: GASTROOESOPHAGEAL REFLUX DISEASE
     Route: 048
     Dates: start: 2011, end: 2012
  42. DEXILANT [Suspect]
     Active Substance: DEXLANSOPRAZOLE
     Indication: GASTROOESOPHAGEAL REFLUX DISEASE
     Route: 065
  43. HYDRALAZINE [Concomitant]
     Active Substance: HYDRALAZINE HYDROCHLORIDE
     Indication: CARDIAC DISORDER
     Dates: start: 20121212, end: 20171022
  44. CIPROFLOXACIN. [Concomitant]
     Active Substance: CIPROFLOXACIN
     Dates: start: 20150813, end: 20150912
  45. DICLOXACILLIN [Concomitant]
     Active Substance: DICLOXACILLIN
     Dates: start: 20150813, end: 20150912
  46. PREDNISONE. [Concomitant]
     Active Substance: PREDNISONE
     Dates: start: 20150206, end: 20150308
  47. MITOMYCIN. [Concomitant]
     Active Substance: MITOMYCIN
     Dates: start: 20150206, end: 20150308
  48. PHENAZOPYRIDINE. [Concomitant]
     Active Substance: PHENAZOPYRIDINE
     Dates: start: 20150206, end: 20150308
  49. ATORVASTATIN [Concomitant]
     Active Substance: ATORVASTATIN
     Dates: start: 20150206, end: 20150308
  50. PREVACID [Suspect]
     Active Substance: LANSOPRAZOLE
     Indication: GASTROOESOPHAGEAL REFLUX DISEASE
     Route: 065
  51. PREVACID 24 HR [Suspect]
     Active Substance: LANSOPRAZOLE
     Indication: GASTROOESOPHAGEAL REFLUX DISEASE
     Route: 065
  52. ZEGERID [Suspect]
     Active Substance: OMEPRAZOLE\SODIUM BICARBONATE
     Indication: GASTROOESOPHAGEAL REFLUX DISEASE
     Route: 065
  53. HYDRALAZINE [Concomitant]
     Active Substance: HYDRALAZINE HYDROCHLORIDE
     Indication: CARDIAC DISORDER
     Dates: start: 20130215, end: 20140216
  54. FUROSEMIDE. [Concomitant]
     Active Substance: FUROSEMIDE
     Dates: start: 20121017, end: 20160814
  55. HYDROCHLOROTHIAZIDE. [Concomitant]
     Active Substance: HYDROCHLOROTHIAZIDE
     Dates: start: 20100412, end: 20131013
  56. POTASSIUM CHLORIDE. [Concomitant]
     Active Substance: POTASSIUM CHLORIDE
     Dates: start: 20150206, end: 20150308
  57. POTASSIUM CHLORIDE. [Concomitant]
     Active Substance: POTASSIUM CHLORIDE
     Dates: start: 20130215, end: 20130317
  58. DICLOXACILLIN [Concomitant]
     Active Substance: DICLOXACILLIN
     Dates: start: 20130215, end: 20130317
  59. PREDNISONE. [Concomitant]
     Active Substance: PREDNISONE
     Dates: start: 20150813, end: 20150912
  60. PREDNISONE. [Concomitant]
     Active Substance: PREDNISONE
     Dates: start: 20130215, end: 20130317
  61. PHENAZOPYRIDINE. [Concomitant]
     Active Substance: PHENAZOPYRIDINE
     Dates: start: 20150813, end: 20150912
  62. NEXIUM [Suspect]
     Active Substance: ESOMEPRAZOLE MAGNESIUM
     Indication: GASTROOESOPHAGEAL REFLUX DISEASE
     Route: 048
  63. FUROSEMIDE. [Concomitant]
     Active Substance: FUROSEMIDE
     Dates: start: 20121012, end: 20131205
  64. ALLOPURINOL. [Concomitant]
     Active Substance: ALLOPURINOL
     Dates: start: 20100412, end: 20130324
  65. TAMSULOSIN [Concomitant]
     Active Substance: TAMSULOSIN
     Dates: start: 20130215, end: 20130317
  66. CARVEDILOL. [Concomitant]
     Active Substance: CARVEDILOL
     Dates: start: 20150813, end: 20150912
  67. ISOSORBIDE DINITRATE. [Concomitant]
     Active Substance: ISOSORBIDE DINITRATE
     Dates: start: 20150206, end: 20150308
  68. ISOSORBIDE DINITRATE. [Concomitant]
     Active Substance: ISOSORBIDE DINITRATE
     Dates: start: 20150813, end: 20150912
  69. POTASSIUM CHLORIDE. [Concomitant]
     Active Substance: POTASSIUM CHLORIDE
     Dates: start: 20150813, end: 20150912
  70. FERROUS GLUCONATE [Concomitant]
     Active Substance: FERROUS GLUCONATE
     Dates: start: 20150813, end: 20150912
  71. HYDROCODONE [Concomitant]
     Active Substance: HYDROCODONE
     Dates: start: 20150813, end: 20150912
  72. PHENAZOPYRIDINE. [Concomitant]
     Active Substance: PHENAZOPYRIDINE
     Dates: start: 20130215, end: 20130317
  73. ATORVASTATIN [Concomitant]
     Active Substance: ATORVASTATIN
     Dates: start: 20130215, end: 20130317
  74. WARFARIN [Concomitant]
     Active Substance: WARFARIN
     Dates: start: 20150813, end: 20150912
  75. WARFARIN [Concomitant]
     Active Substance: WARFARIN
     Dates: start: 20130215, end: 20130317

REACTIONS (4)
  - Acute kidney injury [Not Recovered/Not Resolved]
  - Renal failure [Unknown]
  - Chronic kidney disease [Not Recovered/Not Resolved]
  - Tubulointerstitial nephritis [Unknown]

NARRATIVE: CASE EVENT DATE: 20121212
